FAERS Safety Report 23701822 (Version 3)
Quarter: 2025Q3

REPORT INFORMATION
  Report Type: Spontaneous
  Country: US (occurrence: US)
  Receive Date: 20240403
  Receipt Date: 20250806
  Transmission Date: 20251020
  Serious: No
  Sender: BIOGEN
  Company Number: US-BIOGEN-2024BI01257785

PATIENT
  Sex: Female

DRUGS (1)
  1. VUMERITY [Suspect]
     Active Substance: DIROXIMEL FUMARATE
     Indication: Multiple sclerosis
     Route: 050
     Dates: start: 20211016

REACTIONS (6)
  - Asthenia [Unknown]
  - Dysphonia [Unknown]
  - Sinus disorder [Unknown]
  - Clumsiness [Unknown]
  - Memory impairment [Unknown]
  - Temperature intolerance [Unknown]
